FAERS Safety Report 6017140-6 (Version None)
Quarter: 2008Q4

REPORT INFORMATION
  Report Type: 
  Country: None (occurrence: None)
  Receive Date: 20081219
  Receipt Date: 20080701
  Transmission Date: 20090506
  Serious: No
  Sender: FDA-Public Use
  Company Number: TEST00208002930

PATIENT
  Age: 7 Month

DRUGS (1)
  1. ANDROGEL [Suspect]
     Dosage: /DAILY TRANSCUTANEOUS
     Route: 062

REACTIONS (2)
  - ACCIDENTAL EXPOSURE [None]
  - ACNE [None]
